FAERS Safety Report 9221094 (Version 1)
Quarter: 2013Q2

REPORT INFORMATION
  Report Type: Spontaneous
  Country: US (occurrence: US)
  Receive Date: 20130409
  Receipt Date: 20130409
  Transmission Date: 20140414
  Serious: Yes (Hospitalization, Other)
  Sender: FDA-Public Use
  Company Number: CHPA2013US005924

PATIENT
  Age: 83 Year
  Sex: Female

DRUGS (5)
  1. EXCEDRIN EXTRA STRENGTH [Suspect]
     Indication: MIGRAINE
     Dosage: 1 DF, PRN
     Route: 048
     Dates: start: 2003, end: 20130403
  2. TRAMADOL [Concomitant]
     Dosage: UNK
     Dates: start: 20120920, end: 20120920
  3. BONIVA [Concomitant]
     Dosage: UNK, QMO
  4. CALCIUM + VITAMIN D                /01483701/ [Concomitant]
     Dosage: 55000 UNK, UNK
  5. POTASSIUM [Concomitant]

REACTIONS (8)
  - Loss of consciousness [Recovered/Resolved]
  - Road traffic accident [Recovered/Resolved]
  - Fall [Recovered/Resolved]
  - Pain [Recovered/Resolved]
  - Arthritis [Not Recovered/Not Resolved]
  - Off label use [Unknown]
  - Therapeutic response unexpected [Unknown]
  - Incorrect dose administered [Unknown]
